FAERS Safety Report 10565024 (Version 2)
Quarter: 2020Q4

REPORT INFORMATION
  Report Type: Report from Study
  Country: US (occurrence: US)
  Receive Date: 20141105
  Receipt Date: 20201126
  Transmission Date: 20210113
  Serious: Yes (Other)
  Sender: FDA-Public Use
  Company Number: US-AUROBINDO-AUR-APL-2014-11552

PATIENT
  Age: 48 Year
  Sex: Male

DRUGS (20)
  1. MORPHINE [Suspect]
     Active Substance: MORPHINE
     Indication: ATAXIA
  2. HYDROMORPHONE [Suspect]
     Active Substance: HYDROMORPHONE
     Indication: ATAXIA
  3. TRAZODONE [Suspect]
     Active Substance: TRAZODONE HYDROCHLORIDE
     Indication: PRODUCT USED FOR UNKNOWN INDICATION
     Dosage: UNK
     Route: 048
  4. DIAZEPAM. [Suspect]
     Active Substance: DIAZEPAM
     Indication: PRODUCT USED FOR UNKNOWN INDICATION
     Dosage: UNK
     Route: 048
  5. MORPHINE [Suspect]
     Active Substance: MORPHINE
     Indication: INSOMNIA
     Dosage: 929 MG, DAILY
     Route: 048
  6. HYDROMORPHONE [Suspect]
     Active Substance: HYDROMORPHONE
     Indication: INSOMNIA
     Dosage: 0.27 MG, DAILY
     Route: 037
  7. QUETIAPINE. [Suspect]
     Active Substance: QUETIAPINE
     Indication: PRODUCT USED FOR UNKNOWN INDICATION
     Dosage: UNK
     Route: 048
  8. OXYCODONE+ACETAMINOPHEN [Suspect]
     Active Substance: ACETAMINOPHEN\OXYCODONE HYDROCHLORIDE
     Indication: INSOMNIA
     Dosage: UNK
     Route: 048
  9. OXYCODONE+ACETAMINOPHEN [Suspect]
     Active Substance: ACETAMINOPHEN\OXYCODONE HYDROCHLORIDE
     Indication: ATAXIA
  10. FENTANYL. [Suspect]
     Active Substance: FENTANYL
     Indication: INSOMNIA
     Dosage: 5.5 MG, DAILY
     Route: 037
  11. OXYCODONE [Suspect]
     Active Substance: OXYCODONE
     Indication: INSOMNIA
     Dosage: UNK
     Route: 048
  12. ALPRAZOLAM. [Suspect]
     Active Substance: ALPRAZOLAM
     Indication: PRODUCT USED FOR UNKNOWN INDICATION
     Dosage: UNK
     Route: 048
  13. CLONAZEPAM. [Suspect]
     Active Substance: CLONAZEPAM
     Indication: PRODUCT USED FOR UNKNOWN INDICATION
     Dosage: UNK
     Route: 048
  14. SUFENTANIL [Suspect]
     Active Substance: SUFENTANIL
     Indication: INSOMNIA
     Dosage: 88 ?G, DAILY
     Route: 037
  15. ZOLPIDEM [Suspect]
     Active Substance: ZOLPIDEM TARTRATE
     Indication: PRODUCT USED FOR UNKNOWN INDICATION
     Dosage: UNK
     Route: 048
  16. CARISOPRODOL. [Suspect]
     Active Substance: CARISOPRODOL
     Indication: PRODUCT USED FOR UNKNOWN INDICATION
     Dosage: UNK
     Route: 048
  17. FENTANYL. [Suspect]
     Active Substance: FENTANYL
     Indication: ATAXIA
  18. FENTANYL. [Suspect]
     Active Substance: FENTANYL
     Indication: PRODUCT USED FOR UNKNOWN INDICATION
     Dosage: UNK
     Route: 048
  19. OXYCODONE [Suspect]
     Active Substance: OXYCODONE
     Indication: ATAXIA
  20. SUFENTANIL [Suspect]
     Active Substance: SUFENTANIL
     Indication: ATAXIA

REACTIONS (8)
  - Hyperaesthesia [Recovering/Resolving]
  - Dry mouth [Recovering/Resolving]
  - Nausea [Recovering/Resolving]
  - Vomiting [Recovering/Resolving]
  - Hypogonadism [Recovering/Resolving]
  - Rhinitis [Recovering/Resolving]
  - Sedation [Recovering/Resolving]
  - Muscle spasms [Recovering/Resolving]
